FAERS Safety Report 6593052-4 (Version None)
Quarter: 2010Q1

REPORT INFORMATION
  Report Type: 
  Country: None (occurrence: None)
  Receive Date: 20100222
  Receipt Date: 20100218
  Transmission Date: 20100710
  Serious: Yes (Death)
  Sender: FDA-Public Use
  Company Number: JP-SANOFI-AVENTIS-200911121JP

PATIENT
  Sex: Male

DRUGS (3)
  1. DOCETAXEL [Suspect]
     Route: 041
     Dates: start: 20050917, end: 20061202
  2. HYDROCORTISONE [Concomitant]
  3. ESTRAMUSTINE [Concomitant]

REACTIONS (1)
  - INTERSTITIAL LUNG DISEASE [None]
